FAERS Safety Report 18535194 (Version 1)
Quarter: 2020Q4

REPORT INFORMATION
  Report Type: Spontaneous
  Country: RO (occurrence: RO)
  Receive Date: 20201123
  Receipt Date: 20201123
  Transmission Date: 20210114
  Serious: Yes (Death)
  Sender: FDA-Public Use
  Company Number: RO-ASTRAZENECA-2020SF54154

PATIENT
  Sex: Male

DRUGS (4)
  1. ASPENTER [Concomitant]
     Active Substance: ASPIRIN
  2. NEBILET [Concomitant]
     Active Substance: NEBIVOLOL
  3. SPIOLTO [Concomitant]
     Active Substance: OLODATEROL HYDROCHLORIDE\TIOTROPIUM BROMIDE MONOHYDRATE
  4. SYMBICORT [Suspect]
     Active Substance: BUDESONIDE\FORMOTEROL FUMARATE DIHYDRATE
     Indication: CHRONIC OBSTRUCTIVE PULMONARY DISEASE
     Dosage: 320/9 MCG, 2 INHALATIONS / DAY
     Route: 055

REACTIONS (1)
  - COVID-19 [Fatal]
